FAERS Safety Report 8767262 (Version 4)
Quarter: 2012Q4

REPORT INFORMATION
  Report Type: 
  Country: CA (occurrence: CA)
  Receive Date: 20120904
  Receipt Date: 20121010
  Transmission Date: 20130627
  Serious: Yes (Other)
  Sender: FDA-Public Use
  Company Number: CA-US-EMD SERONO, INC.-7157548

PATIENT
  Age: 11 Year
  Sex: Male
  Weight: 41 kg

DRUGS (8)
  1. SAIZEN [Suspect]
     Indication: GROWTH HORMONE DEFICIENCY
     Route: 058
     Dates: start: 20120530, end: 20120628
  2. SAIZEN [Suspect]
     Indication: GROWTH HORMONE DEFICIENCY
     Route: 058
     Dates: start: 20120829, end: 20120903
  3. SAIZEN [Suspect]
     Route: 058
     Dates: start: 20120904
  4. SAIZEN [Suspect]
     Route: 058
  5. CORTEF [Concomitant]
     Indication: CRANIOPHARYNGIOMA
     Dosage: 7.5 mg/ 2.5 mg
     Route: 048
     Dates: start: 20101201
  6. SYNTHROID [Concomitant]
     Indication: BLOOD CORTICOTROPHIN DECREASED
     Route: 048
     Dates: start: 20101201
  7. SYNTHROID [Concomitant]
     Indication: BLOOD THYROID STIMULATING HORMONE DECREASED
  8. DESMOPRESIN [Concomitant]
     Indication: BLOOD ANTIDIURETIC HORMONE DECREASED
     Route: 048
     Dates: start: 20101201

REACTIONS (3)
  - Papilloedema [Recovered/Resolved]
  - Diplopia [Not Recovered/Not Resolved]
  - Insomnia [Recovering/Resolving]
